FAERS Safety Report 25012789 (Version 1)
Quarter: 2025Q1

REPORT INFORMATION
  Report Type: Spontaneous
  Country: AU (occurrence: AU)
  Receive Date: 20250226
  Receipt Date: 20250226
  Transmission Date: 20250409
  Serious: Yes (Other)
  Sender: ACCORD
  Company Number: None

PATIENT
  Age: 59 Year
  Sex: Female

DRUGS (4)
  1. FLUOROURACIL [Suspect]
     Active Substance: FLUOROURACIL
     Indication: Product used for unknown indication
  2. OXALIPLATIN [Suspect]
     Active Substance: OXALIPLATIN
     Indication: Product used for unknown indication
  3. CAPECITABINE [Suspect]
     Active Substance: CAPECITABINE
     Indication: Product used for unknown indication
  4. LEUCOVORIN [Suspect]
     Active Substance: LEUCOVORIN\LEUCOVORIN CALCIUM
     Indication: Product used for unknown indication

REACTIONS (24)
  - Dysuria [Unknown]
  - Neuropathy peripheral [Unknown]
  - Abdominal discomfort [Unknown]
  - Abdominal pain [Unknown]
  - Cognitive disorder [Unknown]
  - Cold dysaesthesia [Unknown]
  - Constipation [Unknown]
  - Decreased appetite [Unknown]
  - Depressed mood [Unknown]
  - Diarrhoea [Unknown]
  - Disorientation [Unknown]
  - Epistaxis [Unknown]
  - Fatigue [Unknown]
  - Feeling of body temperature change [Unknown]
  - Flat affect [Unknown]
  - Gastrointestinal pain [Unknown]
  - Headache [Unknown]
  - Hyperaesthesia teeth [Unknown]
  - Insomnia [Unknown]
  - Memory impairment [Unknown]
  - Mouth ulceration [Unknown]
  - Neutrophil count decreased [Unknown]
  - Night sweats [Unknown]
  - Pain [Unknown]
